FAERS Safety Report 9973567 (Version 2)
Quarter: 2014Q1

REPORT INFORMATION
  Report Type: Spontaneous
  Country: DE (occurrence: DE)
  Receive Date: 20140306
  Receipt Date: 20140327
  Transmission Date: 20141002
  Serious: Yes (Other)
  Sender: FDA-Public Use
  Company Number: DE-MERZ PHARMACEUTICALS, LLC DRUG SAFETY-14MRZ-00118

PATIENT
  Age: 51 Year
  Sex: Male
  Weight: 98 kg

DRUGS (8)
  1. XEOMIN [Suspect]
     Indication: TORTICOLLIS
     Route: 030
     Dates: start: 20131218, end: 20131218
  2. BELOC-ZOK FORTE [Concomitant]
     Indication: HYPERTENSION
     Dosage: 1 TABLET (1 DOSAGE FORMS, 1 IN 1 D)
  3. AMLODIPINE MALEATE [Concomitant]
     Indication: HYPERTENSION
     Dosage: (10 MG, 1 IN 1 D)
  4. DHC [Concomitant]
     Indication: PAIN
     Dosage: 3 DOSAGE FORMS (1 DOSAGE FORM, 3 IN 1 D)
  5. NOVALGIN [Concomitant]
     Indication: PAIN
     Dosage: 6 DOSAGE FORMS (2 DOSAGE FORMS, 3 IN 1 D)
  6. MYDOCALM [Concomitant]
  7. HYALURON [Concomitant]
     Indication: ARTHROPATHY
  8. IBUPROFEN [Concomitant]

REACTIONS (9)
  - Blood pressure increased [Recovered/Resolved]
  - Dyspnoea [Recovered/Resolved]
  - Dry eye [Recovered/Resolved]
  - Muscle spasms [Recovered/Resolved]
  - Anxiety [Recovered/Resolved]
  - Cardiac disorder [Recovered/Resolved]
  - Hyperhidrosis [Recovered/Resolved]
  - Palpitations [Recovered/Resolved]
  - Claustrophobia [Recovered/Resolved]
